FAERS Safety Report 9713999 (Version 1)
Quarter: 2013Q4

REPORT INFORMATION
  Report Type: Spontaneous
  Country: US (occurrence: US)
  Receive Date: 20131126
  Receipt Date: 20131126
  Transmission Date: 20140711
  Serious: No
  Sender: FDA-Public Use
  Company Number: US-GILEAD-2008-0018520

PATIENT
  Sex: Male
  Weight: 34.47 kg

DRUGS (9)
  1. LETAIRIS [Suspect]
     Indication: PULMONARY ARTERIAL HYPERTENSION
     Route: 048
  2. CHILD TYLENOL SUSPENSION [Concomitant]
  3. LASIX [Concomitant]
  4. REVATIO [Concomitant]
  5. ATENOLOL [Concomitant]
  6. DIGOXIN [Concomitant]
  7. MULTIVITAMIN [Concomitant]
  8. ASPIRIN [Concomitant]
  9. XOPENEX [Concomitant]

REACTIONS (2)
  - Visual impairment [None]
  - Headache [None]
